FAERS Safety Report 11783933 (Version 3)
Quarter: 2016Q2

REPORT INFORMATION
  Report Type: Spontaneous
  Country: ES (occurrence: ES)
  Receive Date: 20151128
  Receipt Date: 20160520
  Transmission Date: 20160815
  Serious: Yes (Other)
  Sender: FDA-Public Use
  Company Number: ES-SUN PHARMACEUTICAL INDUSTRIES LTD-2015RR-106523

PATIENT

DRUGS (6)
  1. CEFUROXIME. [Suspect]
     Active Substance: CEFUROXIME
     Indication: ALLERGY TEST
     Dosage: UNK
     Route: 023
  2. PENICILLIN G [Suspect]
     Active Substance: PENICILLIN G
     Indication: ALLERGY TEST
     Dosage: UNK
     Route: 023
  3. AMPICILLIN [Suspect]
     Active Substance: AMPICILLIN
     Indication: ALLERGY TEST
     Dosage: UNK
     Route: 023
  4. AMOXICILLIN/CLAVULANIC ACID [Suspect]
     Active Substance: AMOXICILLIN\CLAVULANIC ACID
     Indication: ALLERGY TEST
     Dosage: UNK
     Route: 023
  5. AMOXICILLIN. [Suspect]
     Active Substance: AMOXICILLIN
     Indication: ALLERGY TEST
     Dosage: UNK
     Route: 023
  6. CEFIXIME. [Suspect]
     Active Substance: CEFIXIME
     Indication: ALLERGY TEST
     Dosage: UNK
     Route: 023

REACTIONS (1)
  - Anaphylactic reaction [Unknown]
